FAERS Safety Report 17357371 (Version 1)
Quarter: 2020Q1

REPORT INFORMATION
  Report Type: Spontaneous
  Country: US (occurrence: US)
  Receive Date: 20200131
  Receipt Date: 20200131
  Transmission Date: 20200409
  Serious: Yes (Hospitalization, Other)
  Sender: FDA-Public Use
  Company Number: US-009507513-2001USA007386

PATIENT
  Age: 49 Year
  Sex: Female
  Weight: 70.31 kg

DRUGS (53)
  1. DIAZEPAM. [Concomitant]
     Active Substance: DIAZEPAM
     Dosage: 5 MILLIGRAM; DOSAGE FORM: TABLET
     Route: 065
  2. PROPRANOLOL [Concomitant]
     Active Substance: PROPRANOLOL HYDROCHLORIDE
     Indication: MIGRAINE
     Dosage: 40 MILLIGRAM, QD; DOSAGE FORM: TABLET
     Route: 048
     Dates: start: 2014
  3. RANITIDINE. [Concomitant]
     Active Substance: RANITIDINE
     Indication: GASTROOESOPHAGEAL REFLUX DISEASE
     Dosage: 300 MILLIGRAM, QD; DOSAGE FORM: TABLET
     Route: 048
  4. VITAMINS (UNSPECIFIED) [Concomitant]
     Active Substance: VITAMINS
     Dosage: DOSAGE FORM: UNSPECIFIED
     Route: 048
  5. PROMETHAZINE [Suspect]
     Active Substance: PROMETHAZINE HYDROCHLORIDE
     Indication: PRODUCT USED FOR UNKNOWN INDICATION
     Dosage: 25 MILLIGRAM; DOSAGE FORM: TABLET
     Route: 065
     Dates: end: 2013
  6. XARELTO [Suspect]
     Active Substance: RIVAROXABAN
     Indication: COAGULOPATHY
     Route: 048
  7. SULFAMETHOXAZOLE (+) TRIMETHOPRIM [Suspect]
     Active Substance: SULFAMETHOXAZOLE\TRIMETHOPRIM
     Indication: BRONCHITIS
     Dosage: DOSAGE FORM: TABLET, 800/160 (UNITS NOT REPORTED)
     Route: 065
  8. VITAMIN D (UNSPECIFIED) [Concomitant]
     Active Substance: VITAMIN D NOS
     Dosage: DOSAGE FORM: UNSPECIFIED
     Route: 048
  9. MACROBID [Concomitant]
     Active Substance: NITROFURANTOIN\NITROFURANTOIN MONOHYDRATE
     Dosage: 100 MILLIGRAM; DOSAGE FORM: CAPSULE
     Route: 065
  10. INDERAL [Concomitant]
     Active Substance: PROPRANOLOL HYDROCHLORIDE
     Dosage: 10 MILLIGRAM; DOSAGE FORM: TABLET
     Route: 065
  11. GABAPENTIN. [Concomitant]
     Active Substance: GABAPENTIN
     Dosage: 100 MILLIGRAM; DOSAGE FORM: CAPSULE
     Route: 065
  12. ATIVAN [Suspect]
     Active Substance: LORAZEPAM
     Indication: MUSCLE RELAXANT THERAPY
     Dosage: DOSAGE FORM: UNSPECIFIED
     Route: 065
     Dates: start: 2013, end: 2013
  13. AMITRIPTYLINE HYDROCHLORIDE. [Concomitant]
     Active Substance: AMITRIPTYLINE HYDROCHLORIDE
     Indication: SLEEP DISORDER
     Dosage: 50 MILLIGRAM; DOSAGE FORM: TABLET
     Route: 048
  14. MIRTAZAPINE. [Concomitant]
     Active Substance: MIRTAZAPINE
     Dosage: 15 MILLIGRAM; DOSAGE FORM: TABLETS
     Route: 065
  15. VESICARE [Concomitant]
     Active Substance: SOLIFENACIN SUCCINATE
     Indication: HYPERTONIC BLADDER
     Dosage: 5 MILLIGRAM; DOSAGE FORM: TABLET
     Route: 048
  16. MYRBETRIQ [Concomitant]
     Active Substance: MIRABEGRON
     Dosage: 25 MILLIGRAM; DOSAGE FORM: UNSPECIFIED, TB24
     Route: 065
  17. ZOFRAN [Suspect]
     Active Substance: ONDANSETRON HYDROCHLORIDE
     Indication: PRODUCT USED FOR UNKNOWN INDICATION
     Dosage: DOSAGE FORM: UNSPECIFIED
     Route: 065
     Dates: start: 2013, end: 2013
  18. ESTRACE [Concomitant]
     Active Substance: ESTRADIOL
     Dosage: DOSAGE FORM: VAGINAL CREAM
     Route: 067
  19. METROCREAM [Concomitant]
     Active Substance: METRONIDAZOLE
     Dosage: 0.75 PERCENT; DOSAGE FORM: CREAM
     Route: 065
  20. FLEXERIL [Concomitant]
     Active Substance: CYCLOBENZAPRINE HYDROCHLORIDE
     Dosage: 5 MILLIGRAM; DOSAGE FORM: TABLET
     Route: 065
  21. TYLENOL [Concomitant]
     Active Substance: ACETAMINOPHEN
     Dosage: DOSAGE FORM: UNSPECIFIED
     Route: 048
  22. REMERON [Suspect]
     Active Substance: MIRTAZAPINE
     Indication: PRODUCT USED FOR UNKNOWN INDICATION
     Dosage: DOSAGE FORM: UNSPECIFIED
     Route: 065
     Dates: start: 2013, end: 2013
  23. VENTOLIN [Concomitant]
     Active Substance: ALBUTEROL SULFATE
     Dosage: DOSAGE FORM: UNSPECIFIED, 0.083% (2.5MG/3ML) 60X3ML
     Route: 065
  24. VESICARE [Concomitant]
     Active Substance: SOLIFENACIN SUCCINATE
     Indication: HYPERTONIC BLADDER
     Dosage: 10 MILLIGRAM, QD; DOSAGE FORM: TABLET
     Route: 048
  25. VESICARE [Concomitant]
     Active Substance: SOLIFENACIN SUCCINATE
     Indication: URINARY INCONTINENCE
     Dosage: 5 MILLIGRAM; DOSAGE FORM: TABLET
     Route: 048
  26. PROPRANOLOL [Concomitant]
     Active Substance: PROPRANOLOL HYDROCHLORIDE
     Indication: BLOOD PRESSURE ABNORMAL
     Dosage: 40 MILLIGRAM, QD; DOSAGE FORM: TABLET
     Route: 048
     Dates: start: 2014
  27. FLOVENT HFA [Concomitant]
     Active Substance: FLUTICASONE PROPIONATE
     Dosage: 110 MICROGRAM; DOSAGE FORM: UNSPECIFIED
     Route: 048
  28. XARELTO [Suspect]
     Active Substance: RIVAROXABAN
     Indication: COAGULOPATHY
     Dosage: 20 MILLIGRAM, QD
     Route: 048
     Dates: start: 20130129, end: 20131210
  29. OXYBUTYNIN. [Suspect]
     Active Substance: OXYBUTYNIN CHLORIDE
     Indication: PRODUCT USED FOR UNKNOWN INDICATION
     Dosage: DOSAGE FORM: UNSPECIFIED
     Route: 065
     Dates: start: 2013, end: 2013
  30. COMPAZINE (PROCHLORPERAZINE EDISYLATE) [Suspect]
     Active Substance: PROCHLORPERAZINE EDISYLATE
     Indication: PRODUCT USED FOR UNKNOWN INDICATION
     Dosage: DOSAGE FORM: UNSPECIFIED
     Route: 065
     Dates: start: 2013, end: 2013
  31. TRAZODONE HYDROCHLORIDE. [Concomitant]
     Active Substance: TRAZODONE HYDROCHLORIDE
     Dosage: 50 MILLIGRAM; DOSAGE FORM: TABLET
     Route: 065
  32. AMITRIPTYLINE HYDROCHLORIDE. [Concomitant]
     Active Substance: AMITRIPTYLINE HYDROCHLORIDE
     Indication: SLEEP DISORDER
     Dosage: 10 MILLIGRAM, QD; DOSAGE FORM: TABLET
     Route: 048
     Dates: start: 2014
  33. ENOXAPARIN SODIUM. [Concomitant]
     Active Substance: ENOXAPARIN SODIUM
     Dosage: DOSAGE FORM: SOLUTION, 80MG/0.8ML
     Route: 065
  34. ZANTAC [Concomitant]
     Active Substance: RANITIDINE HYDROCHLORIDE
     Dosage: 150 MILLIGRAM ; DOSAGE FORM: TABLET
     Route: 065
  35. FLAXSEED [Concomitant]
     Active Substance: FLAX SEED
     Dosage: DOSAGE FORM: UNSPECIFIED
     Route: 048
  36. PENICILLIN VK [Concomitant]
     Active Substance: PENICILLIN V POTASSIUM
     Dosage: 500 MILLIGRAM; DOSAGE FORM: TABLET
     Route: 065
  37. XARELTO [Suspect]
     Active Substance: RIVAROXABAN
     Indication: COAGULOPATHY
     Route: 048
  38. MAXALT [Concomitant]
     Active Substance: RIZATRIPTAN BENZOATE
     Indication: MIGRAINE
     Dosage: 5 MILLIGRAM AS NECESSARY; DOSAGE FORM: TABLET
     Route: 048
  39. PERMETHRIN. [Concomitant]
     Active Substance: PERMETHRIN
     Dosage: 5 PERCENT; DOSAGE FORM: CREAM
     Route: 065
  40. CEPHALEXIN. [Concomitant]
     Active Substance: CEPHALEXIN
     Dosage: 500 MILLIGRAM; DOSAGE FORM: UNSPECIFIED
     Route: 065
  41. QVAR [Concomitant]
     Active Substance: BECLOMETHASONE DIPROPIONATE
     Dosage: 80 MICROGRAM; DOSAGE FORM: INHALATION
     Route: 048
  42. VESICARE [Concomitant]
     Active Substance: SOLIFENACIN SUCCINATE
     Indication: URINARY INCONTINENCE
     Dosage: 10 MILLIGRAM, QD; DOSAGE FORM: TABLET
     Route: 048
  43. OMEPRAZOLE. [Concomitant]
     Active Substance: OMEPRAZOLE
     Dosage: 20 MILLIGRAM; DOSAGE FORM: CAPSULE
     Route: 065
  44. TERCONAZOLE. [Concomitant]
     Active Substance: TERCONAZOLE
     Dosage: 0.8 PERCENT; DOSAGE FORM: VAGINAL CREAM, 20GM
     Route: 065
  45. CLINDAMYCIN. [Concomitant]
     Active Substance: CLINDAMYCIN
     Dosage: 1 PERCENT; DOSAGE FORM: LOTION, 60ML
     Route: 065
  46. CLINDAMYCIN. [Concomitant]
     Active Substance: CLINDAMYCIN
     Dosage: 300 MILLIGRAM; DOSAGE FORM: CAPSULE
     Route: 065
  47. PROAIR (PROCATEROL HYDROCHLORIDE) [Concomitant]
     Active Substance: PROCATEROL HYDROCHLORIDE
     Dosage: 85 GRAM; DOSAGE FORM: UNSPECIFIED
     Route: 065
  48. VALIUM [Suspect]
     Active Substance: DIAZEPAM
     Indication: PRODUCT USED FOR UNKNOWN INDICATION
     Dosage: DOSAGE FORM: UNSPECIFIED
     Route: 065
     Dates: start: 2013, end: 2013
  49. REGLAN [Suspect]
     Active Substance: METOCLOPRAMIDE HYDROCHLORIDE
     Indication: PRODUCT USED FOR UNKNOWN INDICATION
     Dosage: DOSAGE FORM: UNSPECIFIED
     Route: 065
     Dates: start: 2013, end: 2013
  50. CYCLOBENZAPRINE HYDROCHLORIDE. [Concomitant]
     Active Substance: CYCLOBENZAPRINE HYDROCHLORIDE
     Dosage: 5 MILLIGRAM; DOSAGE FORM: TABLET
     Route: 065
  51. CIPRO [Concomitant]
     Active Substance: CIPROFLOXACIN HYDROCHLORIDE
     Dosage: 500 MILLIGRAM; DOSAGE FORM: TABLET
     Route: 065
  52. LEVOXYL [Concomitant]
     Active Substance: LEVOTHYROXINE SODIUM
     Indication: THYROID DISORDER
     Dosage: 50 MICROGRAM, QD; DOSAGE FORM: TABLET
     Route: 048
  53. PREDNISONE. [Concomitant]
     Active Substance: PREDNISONE
     Dosage: 20 MILLIGRAM; DOSAGE FORM: TABLET
     Route: 065

REACTIONS (32)
  - Feeling abnormal [Unknown]
  - Pain in extremity [Unknown]
  - Pruritus [Unknown]
  - Epistaxis [Recovered/Resolved]
  - Confusional state [Recovered/Resolved]
  - Impaired healing [Unknown]
  - Petechiae [Unknown]
  - Blood disorder [Recovered/Resolved]
  - Chills [Recovered/Resolved]
  - Insomnia [Unknown]
  - Lip swelling [Unknown]
  - Asthenia [Unknown]
  - Neck pain [Recovered/Resolved]
  - Vision blurred [Recovered/Resolved]
  - Amnesia [Unknown]
  - Off label use [Unknown]
  - Scar pain [Unknown]
  - Arrhythmia [Recovered/Resolved]
  - Venous injury [Unknown]
  - Drug hypersensitivity [Recovered/Resolved]
  - Nonspecific reaction [Recovered/Resolved]
  - Adverse drug reaction [Recovered/Resolved]
  - Disturbance in attention [Recovered/Resolved]
  - Malaise [Unknown]
  - Anxiety [Recovered/Resolved]
  - Drug ineffective for unapproved indication [Unknown]
  - Depression [Recovered/Resolved]
  - Headache [Unknown]
  - Rash [Recovered/Resolved]
  - Hypertension [Recovered/Resolved]
  - Migraine [Recovered/Resolved]
  - Dyspnoea [Unknown]

NARRATIVE: CASE EVENT DATE: 2013
